FAERS Safety Report 14560767 (Version 5)
Quarter: 2018Q4

REPORT INFORMATION
  Report Type: Report from Study
  Country: US (occurrence: US)
  Receive Date: 20180222
  Receipt Date: 20181106
  Transmission Date: 20190204
  Serious: Yes (Death, Life-Threatening, Hospitalization)
  Sender: FDA-Public Use
  Company Number: US-ROCHE-2074012

PATIENT
  Sex: Female

DRUGS (7)
  1. ATEZOLIZUMAB. [Suspect]
     Active Substance: ATEZOLIZUMAB
     Indication: INFLAMMATORY CARCINOMA OF THE BREAST
     Route: 042
     Dates: start: 20180130
  2. TEMAZEPAM. [Concomitant]
     Active Substance: TEMAZEPAM
  3. DICYCLOMINE [Concomitant]
     Active Substance: DICYCLOMINE HYDROCHLORIDE
  4. COBIMETINIB. [Suspect]
     Active Substance: COBIMETINIB
     Indication: INFLAMMATORY CARCINOMA OF THE BREAST
     Route: 048
     Dates: start: 20180130
  5. CLINDAMYCIN. [Concomitant]
     Active Substance: CLINDAMYCIN
  6. OXYCODONE [Concomitant]
     Active Substance: OXYCODONE
  7. MEMANTINE. [Concomitant]
     Active Substance: MEMANTINE

REACTIONS (2)
  - Cerebrovascular accident [Unknown]
  - Haemorrhage intracranial [Unknown]

NARRATIVE: CASE EVENT DATE: 20180211
